FAERS Safety Report 16327390 (Version 1)
Quarter: 2019Q2

REPORT INFORMATION
  Report Type: Spontaneous
  Country: US (occurrence: US)
  Receive Date: 20190517
  Receipt Date: 20190517
  Transmission Date: 20190711
  Serious: Yes (Death, Other)
  Sender: FDA-Public Use
  Company Number: US-NAPPMUNDI-GBR-2019-0066509

PATIENT
  Age: 8 Year
  Sex: Male

DRUGS (4)
  1. CEFTRIAXONE. [Suspect]
     Active Substance: CEFTRIAXONE
     Indication: SICKLE CELL ANAEMIA WITH CRISIS
     Route: 065
  2. FUROSEMIDE. [Suspect]
     Active Substance: FUROSEMIDE
     Indication: ACUTE CHEST SYNDROME
     Route: 065
  3. MORPHINE SULFATE. [Suspect]
     Active Substance: MORPHINE SULFATE
     Indication: SICKLE CELL ANAEMIA WITH CRISIS
     Route: 065
  4. CLARITHROMYCIN. [Suspect]
     Active Substance: CLARITHROMYCIN
     Indication: ACUTE CHEST SYNDROME
     Route: 065

REACTIONS (4)
  - Fungal infection [Fatal]
  - Cardio-respiratory arrest [Fatal]
  - Brain death [Fatal]
  - Multiple organ dysfunction syndrome [Fatal]
